FAERS Safety Report 19414739 (Version 5)
Quarter: 2021Q3

REPORT INFORMATION
  Report Type: Spontaneous
  Country: GB (occurrence: GB)
  Receive Date: 20210614
  Receipt Date: 20210805
  Transmission Date: 20211014
  Serious: Yes (Hospitalization)
  Sender: FDA-Public Use
  Company Number: GB-ADVANZ PHARMA-202106004165

PATIENT

DRUGS (4)
  1. MYCOPHENOLATE MOFETIL. [Suspect]
     Active Substance: MYCOPHENOLATE MOFETIL
     Indication: IMMUNOSUPPRESSION
     Dosage: 500 MG, BID
     Dates: start: 2001, end: 2016
  2. TACROLIMUS. [Suspect]
     Active Substance: TACROLIMUS
     Indication: IMMUNOSUPPRESSION
     Dosage: 5 MG, BID
  3. TACROLIMUS. [Suspect]
     Active Substance: TACROLIMUS
     Dosage: 2 MG, BID (REDUCED DOSE)
  4. PREDNISOLONE. [Suspect]
     Active Substance: PREDNISOLONE
     Indication: IMMUNOSUPPRESSION
     Dosage: 5 MG, QD

REACTIONS (1)
  - Toxoplasmosis [Recovering/Resolving]
